FAERS Safety Report 9651396 (Version 2)
Quarter: 2013Q4

REPORT INFORMATION
  Report Type: Spontaneous
  Country: AT (occurrence: AT)
  Receive Date: 20131029
  Receipt Date: 20131113
  Transmission Date: 20140711
  Serious: Yes (Other)
  Sender: FDA-Public Use
  Company Number: PHHY2013AT120427

PATIENT
  Sex: Female
  Weight: 65 kg

DRUGS (5)
  1. TAMOXIFEN [Suspect]
     Indication: BREAST CANCER
     Dosage: 20 MONTHS
  2. FULVESTRANT [Suspect]
     Indication: METASTASIS
     Dosage: UNK UKN, UNK
  3. FULVESTRANT [Suspect]
     Indication: CHEMOTHERAPY
  4. ARIMIDEX [Suspect]
     Indication: METASTASIS
     Dosage: 1 MG
     Dates: start: 200807, end: 201009
  5. DENOSUMAB [Suspect]
     Dosage: UNK UKN, UNK
     Dates: start: 201110, end: 201306

REACTIONS (4)
  - Osteonecrosis [Unknown]
  - Metastases to bone [Unknown]
  - Metastases to lymph nodes [Unknown]
  - Toxicity to various agents [Unknown]
